FAERS Safety Report 14984899 (Version 4)
Quarter: 2018Q2

REPORT INFORMATION
  Report Type: Spontaneous
  Country: US (occurrence: US)
  Receive Date: 20180607
  Receipt Date: 20180615
  Transmission Date: 20180711
  Serious: Yes (Hospitalization)
  Sender: FDA-Public Use
  Company Number: US-TEVA-2018-US-901293

PATIENT
  Sex: Female
  Weight: 80 kg

DRUGS (1)
  1. PROAIR HFA [Suspect]
     Active Substance: ALBUTEROL SULFATE
     Indication: ASTHMA
     Dosage: FREQUENCY: 2 PUFFS EVERY 4 HOURS
     Route: 055
     Dates: start: 2018

REACTIONS (14)
  - Feeling abnormal [Not Recovered/Not Resolved]
  - Product quality issue [Unknown]
  - Incorrect dose administered by product [Unknown]
  - Dyspnoea [Not Recovered/Not Resolved]
  - Gait disturbance [Unknown]
  - Balance disorder [Unknown]
  - Product prescribing issue [Recovered/Resolved]
  - Nasopharyngitis [Unknown]
  - Pulmonary thrombosis [Unknown]
  - Regurgitation [Unknown]
  - Abdominal pain upper [Not Recovered/Not Resolved]
  - Intra-abdominal fluid collection [Unknown]
  - Drug ineffective [Unknown]
  - Impaired quality of life [Not Recovered/Not Resolved]

NARRATIVE: CASE EVENT DATE: 2018
